FAERS Safety Report 25376783 (Version 1)
Quarter: 2025Q2

REPORT INFORMATION
  Report Type: Spontaneous
  Country: US (occurrence: US)
  Receive Date: 20250530
  Receipt Date: 20250530
  Transmission Date: 20250716
  Serious: Yes (Disabling)
  Sender: CHEPLAPHARM
  Company Number: US-CHEPLA-2025006601

PATIENT

DRUGS (2)
  1. QUETIAPINE [Suspect]
     Active Substance: QUETIAPINE
  2. OLANZAPINE [Suspect]
     Active Substance: OLANZAPINE

REACTIONS (5)
  - Somnolence [Unknown]
  - Sedation complication [Unknown]
  - Cognitive disorder [Unknown]
  - Drug dependence [Unknown]
  - Drug withdrawal syndrome [Unknown]
